FAERS Safety Report 8503288-0 (Version None)
Quarter: 2012Q3

REPORT INFORMATION
  Report Type: 
  Country: None (occurrence: None)
  Receive Date: 20120702
  Receipt Date: 20110608
  Transmission Date: 20120928
  Serious: Yes (Hospitalization, Other)
  Sender: FDA-Public Use
  Company Number: DE-022900

PATIENT
  Age: 79 Year
  Sex: Male
  Weight: 70 kg

DRUGS (2)
  1. CHLORAMBUCIL (CHLORAMBUCIL) [Suspect]
     Indication: CHRONIC LYMPHOCYTIC LEUKAEMIA
     Dosage: 10 MG DAYS 1-7 EVERY 28 DAYS, ORAL
     Route: 048
     Dates: start: 20100906
  2. OFATUMUMAB (OFATUMUMAB) (INJECTION) [Suspect]
     Indication: CHRONIC LYMPHOCYTIC LEUKAEMIA
     Dosage: 300 MG DAY 1, 1000 MAY 8 FOLLOWED BY 1000 MG EVERY 28 DAYS, INTRAVENOUS
     Route: 042
     Dates: start: 20100906

REACTIONS (2)
  - PYREXIA [None]
  - LEUKOPENIA [None]
